FAERS Safety Report 25022537 (Version 6)
Quarter: 2025Q3

REPORT INFORMATION
  Report Type: Report from Study
  Country: JP (occurrence: JP)
  Receive Date: 20250228
  Receipt Date: 20250912
  Transmission Date: 20251021
  Serious: Yes (Other)
  Sender: CSL BEHRING
  Company Number: JP-BEH-2025196587

PATIENT
  Age: 49 Year
  Sex: Female
  Weight: 57 kg

DRUGS (47)
  1. BERINERT [Suspect]
     Active Substance: HUMAN C1-ESTERASE INHIBITOR
     Indication: Hereditary angioedema with normal C1 esterase inhibitor
     Dosage: 7 ML, BIW
     Route: 058
     Dates: start: 20230328
  2. BERINERT [Suspect]
     Active Substance: HUMAN C1-ESTERASE INHIBITOR
     Indication: Prophylaxis
  3. BERINERT [Suspect]
     Active Substance: HUMAN C1-ESTERASE INHIBITOR
     Indication: Hereditary angioedema
     Route: 041
     Dates: start: 20230314, end: 20230314
  4. BERINERT [Suspect]
     Active Substance: HUMAN C1-ESTERASE INHIBITOR
     Indication: Hereditary angioedema
     Route: 041
     Dates: start: 20230314, end: 20230314
  5. BERINERT [Suspect]
     Active Substance: HUMAN C1-ESTERASE INHIBITOR
     Route: 041
     Dates: start: 20231114, end: 20231114
  6. BERINERT [Suspect]
     Active Substance: HUMAN C1-ESTERASE INHIBITOR
     Route: 041
     Dates: start: 20231114, end: 20231114
  7. ORLADEYO [Concomitant]
     Active Substance: BEROTRALSTAT HYDROCHLORIDE
     Indication: Hereditary angioedema with normal C1 esterase inhibitor
     Dosage: 1 DF, QD
     Route: 048
     Dates: start: 2023, end: 202403
  8. FIRAZYR [Concomitant]
     Active Substance: ICATIBANT ACETATE
     Indication: Hereditary angioedema
     Dates: start: 202208, end: 202208
  9. FIRAZYR [Concomitant]
     Active Substance: ICATIBANT ACETATE
     Indication: Dental care
     Dates: start: 20221024, end: 20221024
  10. FIRAZYR [Concomitant]
     Active Substance: ICATIBANT ACETATE
     Indication: Prophylaxis
     Dates: start: 20221101, end: 20221101
  11. FIRAZYR [Concomitant]
     Active Substance: ICATIBANT ACETATE
     Indication: Prophylaxis
     Dates: start: 20221215, end: 20221215
  12. FIRAZYR [Concomitant]
     Active Substance: ICATIBANT ACETATE
     Dates: start: 20230116, end: 20230116
  13. FIRAZYR [Concomitant]
     Active Substance: ICATIBANT ACETATE
     Dates: start: 20230215, end: 20230215
  14. FIRAZYR [Concomitant]
     Active Substance: ICATIBANT ACETATE
     Dates: start: 20230222, end: 20230222
  15. FIRAZYR [Concomitant]
     Active Substance: ICATIBANT ACETATE
     Route: 058
     Dates: start: 20230309, end: 20230309
  16. FIRAZYR [Concomitant]
     Active Substance: ICATIBANT ACETATE
     Route: 058
     Dates: start: 20230412, end: 20230412
  17. FIRAZYR [Concomitant]
     Active Substance: ICATIBANT ACETATE
     Route: 058
     Dates: start: 20230420, end: 20230420
  18. FIRAZYR [Concomitant]
     Active Substance: ICATIBANT ACETATE
     Route: 058
     Dates: start: 20230426, end: 20230426
  19. FIRAZYR [Concomitant]
     Active Substance: ICATIBANT ACETATE
     Route: 058
     Dates: start: 20230502, end: 20230502
  20. FIRAZYR [Concomitant]
     Active Substance: ICATIBANT ACETATE
     Route: 058
     Dates: start: 20230515, end: 20230515
  21. FIRAZYR [Concomitant]
     Active Substance: ICATIBANT ACETATE
     Route: 058
     Dates: start: 20230526, end: 20230526
  22. FIRAZYR [Concomitant]
     Active Substance: ICATIBANT ACETATE
     Route: 058
     Dates: start: 20230609, end: 20230609
  23. FIRAZYR [Concomitant]
     Active Substance: ICATIBANT ACETATE
     Route: 058
     Dates: start: 20230626, end: 20230626
  24. FIRAZYR [Concomitant]
     Active Substance: ICATIBANT ACETATE
     Route: 058
     Dates: start: 20230627, end: 20230627
  25. FIRAZYR [Concomitant]
     Active Substance: ICATIBANT ACETATE
     Dates: start: 20230726, end: 20230726
  26. FIRAZYR [Concomitant]
     Active Substance: ICATIBANT ACETATE
     Dates: start: 20230828, end: 20230828
  27. FIRAZYR [Concomitant]
     Active Substance: ICATIBANT ACETATE
     Dates: start: 20230829, end: 20230829
  28. FIRAZYR [Concomitant]
     Active Substance: ICATIBANT ACETATE
     Dates: start: 20230911, end: 20230911
  29. FIRAZYR [Concomitant]
     Active Substance: ICATIBANT ACETATE
     Dates: start: 20230925, end: 20230925
  30. FIRAZYR [Concomitant]
     Active Substance: ICATIBANT ACETATE
     Dates: start: 20231018, end: 20231018
  31. FIRAZYR [Concomitant]
     Active Substance: ICATIBANT ACETATE
     Dates: start: 20231106, end: 20231106
  32. FIRAZYR [Concomitant]
     Active Substance: ICATIBANT ACETATE
     Dates: start: 20231109, end: 20231109
  33. FIRAZYR [Concomitant]
     Active Substance: ICATIBANT ACETATE
     Dates: start: 20231111, end: 20231111
  34. FIRAZYR [Concomitant]
     Active Substance: ICATIBANT ACETATE
     Dates: start: 202312, end: 202312
  35. FIRAZYR [Concomitant]
     Active Substance: ICATIBANT ACETATE
     Dates: start: 20240101, end: 20240101
  36. FIRAZYR [Concomitant]
     Active Substance: ICATIBANT ACETATE
     Dates: start: 20240110, end: 20240110
  37. FIRAZYR [Concomitant]
     Active Substance: ICATIBANT ACETATE
     Dates: start: 202401, end: 202401
  38. FIRAZYR [Concomitant]
     Active Substance: ICATIBANT ACETATE
     Dates: start: 202401, end: 202401
  39. FIRAZYR [Concomitant]
     Active Substance: ICATIBANT ACETATE
     Dates: start: 202401, end: 202401
  40. FIRAZYR [Concomitant]
     Active Substance: ICATIBANT ACETATE
     Dates: start: 202404, end: 202404
  41. FIRAZYR [Concomitant]
     Active Substance: ICATIBANT ACETATE
     Dates: start: 202405, end: 202405
  42. FIRAZYR [Concomitant]
     Active Substance: ICATIBANT ACETATE
     Dates: start: 202405, end: 202405
  43. FIRAZYR [Concomitant]
     Active Substance: ICATIBANT ACETATE
     Dates: start: 202405, end: 202405
  44. FIRAZYR [Concomitant]
     Active Substance: ICATIBANT ACETATE
     Dates: start: 202407, end: 202407
  45. FIRAZYR [Concomitant]
     Active Substance: ICATIBANT ACETATE
     Dates: start: 202407, end: 202407
  46. FIRAZYR [Concomitant]
     Active Substance: ICATIBANT ACETATE
     Dates: start: 202408, end: 202408
  47. FIRAZYR [Concomitant]
     Active Substance: ICATIBANT ACETATE
     Dates: start: 202412, end: 202412

REACTIONS (50)
  - Hereditary angioedema [Recovered/Resolved]
  - Pharyngeal swelling [Recovered/Resolved]
  - Dyspnoea [Recovered/Resolved]
  - Chest pain [Recovered/Resolved]
  - Malaise [Recovered/Resolved]
  - Peripheral swelling [Recovered/Resolved]
  - Hereditary angioedema [Recovered/Resolved]
  - Hereditary angioedema [Recovered/Resolved]
  - Hereditary angioedema [Recovered/Resolved]
  - Hereditary angioedema [Recovered/Resolved]
  - Hereditary angioedema [Recovered/Resolved]
  - Throat tightness [Recovered/Resolved]
  - Swollen tongue [Recovered/Resolved]
  - Malaise [Recovered/Resolved]
  - Hereditary angioedema [Recovered/Resolved]
  - Throat tightness [Recovered/Resolved]
  - Swollen tongue [Recovered/Resolved]
  - Malaise [Recovered/Resolved]
  - Hereditary angioedema [Recovered/Resolved]
  - Hereditary angioedema [Recovered/Resolved]
  - Hereditary angioedema [Recovering/Resolving]
  - Hereditary angioedema [Recovering/Resolving]
  - Hereditary angioedema [Recovering/Resolving]
  - Hereditary angioedema [Recovering/Resolving]
  - Hereditary angioedema [Recovering/Resolving]
  - Hereditary angioedema [Recovering/Resolving]
  - Hereditary angioedema [Recovering/Resolving]
  - Hereditary angioedema [Recovering/Resolving]
  - Hereditary angioedema [Recovering/Resolving]
  - Hereditary angioedema [Recovering/Resolving]
  - Hereditary angioedema [Recovering/Resolving]
  - Hereditary angioedema [Recovering/Resolving]
  - Hereditary angioedema [Recovering/Resolving]
  - Hereditary angioedema [Recovering/Resolving]
  - Hereditary angioedema [Recovering/Resolving]
  - Hereditary angioedema [Recovering/Resolving]
  - Hereditary angioedema [Recovering/Resolving]
  - Hereditary angioedema [Recovering/Resolving]
  - Hereditary angioedema [Recovering/Resolving]
  - Hereditary angioedema [Recovering/Resolving]
  - Hereditary angioedema [Recovering/Resolving]
  - Adverse event [Recovered/Resolved]
  - Adverse event [Recovered/Resolved]
  - Adverse event [Recovered/Resolved]
  - Adverse event [Recovered/Resolved]
  - Adverse event [Recovered/Resolved]
  - Pruritus [Recovering/Resolving]
  - Erythema [Recovering/Resolving]
  - Pruritus [Recovered/Resolved]
  - Erythema [Recovered/Resolved]

NARRATIVE: CASE EVENT DATE: 20230405
